FAERS Safety Report 25268303 (Version 1)
Quarter: 2025Q2

REPORT INFORMATION
  Report Type: Spontaneous
  Country: US (occurrence: None)
  Receive Date: 20250502
  Receipt Date: 20250502
  Transmission Date: 20250717
  Serious: Yes (Hospitalization)
  Sender: FDA-CTU
  Company Number: None

PATIENT
  Sex: Male

DRUGS (10)
  1. MYCOPHENOLIC ACID [Suspect]
     Active Substance: MYCOPHENOLIC ACID
     Indication: Renal transplant
     Route: 048
     Dates: start: 20200923
  2. CALCITRIOL [Concomitant]
     Active Substance: CALCITRIOL
  3. DAPSONE [Concomitant]
     Active Substance: DAPSONE
  4. ESCITALOPRAM [Concomitant]
     Active Substance: ESCITALOPRAM OXALATE
  5. LEVOTHYROXINE [Concomitant]
     Active Substance: LEVOTHYROXINE
  6. METOPROLOL TARTRATE [Concomitant]
     Active Substance: METOPROLOL TARTRATE
  7. NOVOLOG INJ FLEXPEN [Concomitant]
  8. SIMVASTATIN [Concomitant]
     Active Substance: SIMVASTATIN
  9. TELMISA/HCTZ [Concomitant]
  10. VALGANCICLOV [Concomitant]

REACTIONS (3)
  - Guillain-Barre syndrome [None]
  - Respiratory tract infection [None]
  - Urinary tract infection [None]
